FAERS Safety Report 6815344-3 (Version None)
Quarter: 2010Q3

REPORT INFORMATION
  Report Type: 
  Country: None (occurrence: None)
  Receive Date: 20100702
  Receipt Date: 20100622
  Transmission Date: 20110219
  Serious: Yes (Other)
  Sender: FDA-Public Use
  Company Number: US-ELI_LILLY_AND_COMPANY-US201003003459

PATIENT
  Sex: Male
  Weight: 48.526 kg

DRUGS (2)
  1. HUMATROPE [Suspect]
     Indication: DWARFISM
     Dosage: 2.1 MG, DAILY (1/D)
     Route: 058
     Dates: start: 20090629, end: 20100301
  2. HUMATROPE [Suspect]
     Dosage: 2.1 MG, DAILY (1/D)
     Route: 058
     Dates: start: 20100317

REACTIONS (2)
  - PETIT MAL EPILEPSY [None]
  - TONIC CONVULSION [None]
